FAERS Safety Report 23302016 (Version 1)
Quarter: 2023Q4

REPORT INFORMATION
  Report Type: Report from Study
  Country: ZA (occurrence: ZA)
  Receive Date: 20231215
  Receipt Date: 20231215
  Transmission Date: 20240110
  Serious: Yes (Disabling, Other)
  Sender: FDA-Public Use
  Company Number: ZA-ABBVIE-5535889

PATIENT
  Sex: Female

DRUGS (1)
  1. HUMIRA [Suspect]
     Active Substance: ADALIMUMAB
     Indication: Rheumatoid arthritis
     Dosage: FORM STRENGTH: 40 MILLIGRAM
     Route: 058
     Dates: start: 20230822

REACTIONS (3)
  - Postoperative thrombosis [Recovering/Resolving]
  - Mobility decreased [Recovering/Resolving]
  - Cervical spinal stenosis [Not Recovered/Not Resolved]

NARRATIVE: CASE EVENT DATE: 20230101
